FAERS Safety Report 20477828 (Version 1)
Quarter: 2022Q1

REPORT INFORMATION
  Report Type: Report from Study
  Country: AT (occurrence: AT)
  Receive Date: 20220216
  Receipt Date: 20220216
  Transmission Date: 20220423
  Serious: Yes (Death, Other)
  Sender: FDA-Public Use
  Company Number: None

PATIENT
  Age: 55 Year
  Sex: Male

DRUGS (3)
  1. MYCOPHENOLATE MOFETIL [Suspect]
     Active Substance: MYCOPHENOLATE MOFETIL
     Indication: Immunosuppressant drug therapy
     Route: 065
  2. TACROLIMUS [Suspect]
     Active Substance: TACROLIMUS
     Indication: Immunosuppressant drug therapy
     Route: 065
  3. ALEMTUZUMAB [Suspect]
     Active Substance: ALEMTUZUMAB
     Indication: Immunosuppressant drug therapy
     Route: 065

REACTIONS (9)
  - Renal failure [Unknown]
  - Graft loss [Unknown]
  - Gastric cancer [Fatal]
  - Hyperlipidaemia [Unknown]
  - Hypertension [Unknown]
  - Nephropathy [Unknown]
  - Emphysema [Unknown]
  - Transplant rejection [Unknown]
  - Drug intolerance [Unknown]
